FAERS Safety Report 11201927 (Version 2)
Quarter: 2015Q3

REPORT INFORMATION
  Report Type: Report from Study
  Country: US (occurrence: US)
  Receive Date: 20150619
  Receipt Date: 20150708
  Transmission Date: 20151125
  Serious: Yes (Other)
  Sender: FDA-Public Use
  Company Number: US-BIOGENIDEC-2015BI083116

PATIENT
  Age: 59 Year
  Sex: Female

DRUGS (1)
  1. AVONEX [Suspect]
     Active Substance: INTERFERON BETA-1A
     Indication: MULTIPLE SCLEROSIS
     Route: 030
     Dates: start: 20000611, end: 20000625

REACTIONS (2)
  - Breast cancer [Recovered/Resolved]
  - Depression [Recovered/Resolved]

NARRATIVE: CASE EVENT DATE: 2000
